FAERS Safety Report 15342673 (Version 3)
Quarter: 2018Q4

REPORT INFORMATION
  Report Type: Report from Study
  Country: None (occurrence: US)
  Receive Date: 20180903
  Receipt Date: 20181029
  Transmission Date: 20190204
  Serious: Yes (Hospitalization, Other)
  Sender: FDA-Public Use
  Company Number: US-ABBVIE-18K-163-2430917-00

PATIENT
  Age: 88 Year
  Sex: Male
  Weight: 50.39 kg

DRUGS (2)
  1. HUMIRA [Suspect]
     Active Substance: ADALIMUMAB
     Indication: COLITIS ULCERATIVE
     Route: 058
     Dates: start: 201706, end: 20180712
  2. KEFLEX [Suspect]
     Active Substance: CEPHALEXIN
     Indication: PRODUCT USED FOR UNKNOWN INDICATION
     Route: 065

REACTIONS (9)
  - Atrial fibrillation [Recovering/Resolving]
  - Decreased appetite [Not Recovered/Not Resolved]
  - Urinary tract infection [Unknown]
  - Nasopharyngitis [Recovered/Resolved]
  - Confusional state [Recovered/Resolved]
  - Incoherent [Recovered/Resolved]
  - Pneumonia [Recovered/Resolved]
  - Subcutaneous abscess [Not Recovered/Not Resolved]
  - Aortic aneurysm [Not Recovered/Not Resolved]

NARRATIVE: CASE EVENT DATE: 20180729
